FAERS Safety Report 14959073 (Version 1)
Quarter: 2018Q2

REPORT INFORMATION
  Report Type: Spontaneous
  Country: US (occurrence: US)
  Receive Date: 20180510
  Receipt Date: 20180510
  Transmission Date: 20180711
  Serious: Yes (Hospitalization)
  Sender: FDA-Public Use
  Company Number: None

PATIENT
  Age: 65 Year
  Sex: Female

DRUGS (3)
  1. VALSARTAN. [Concomitant]
     Active Substance: VALSARTAN
  2. CARDIZEM LA [Concomitant]
     Active Substance: DILTIAZEM HYDROCHLORIDE
  3. VANCOMYCIN 750MG IN 100 ML N S ECLIPSE INFUSE INTRAVENOUSLY EVERY 12 H [Suspect]
     Active Substance: VANCOMYCIN HYDROCHLORIDE
     Indication: BACTERIAL INFECTION
     Dates: start: 20180320, end: 20180419

REACTIONS (3)
  - Urticaria [None]
  - Heart rate increased [None]
  - Red man syndrome [None]

NARRATIVE: CASE EVENT DATE: 20180418
